FAERS Safety Report 22626342 (Version 1)
Quarter: 2023Q2

REPORT INFORMATION
  Report Type: Spontaneous
  Country: FR (occurrence: FR)
  Receive Date: 20230621
  Receipt Date: 20230621
  Transmission Date: 20230721
  Serious: Yes (Life-Threatening)
  Sender: FDA-Public Use
  Company Number: None

PATIENT
  Age: 24 Year
  Sex: Male
  Weight: 64.6 kg

DRUGS (3)
  1. BRINTELLIX [Suspect]
     Active Substance: VORTIOXETINE HYDROBROMIDE
     Indication: Depression
     Dosage: 560 MILLIGRAM, QD
     Route: 048
     Dates: start: 20230515, end: 20230515
  2. XANAX [Suspect]
     Active Substance: ALPRAZOLAM
     Indication: Anxiety
     Dosage: 45 MILLIGRAM, QD
     Route: 048
     Dates: start: 20230515, end: 20230515
  3. QUETIAPINE [Suspect]
     Active Substance: QUETIAPINE
     Indication: Depression
     Dosage: 1400 MILLIGRAM, QD
     Route: 048
     Dates: start: 20230515, end: 20230515

REACTIONS (4)
  - Rhabdomyolysis [Recovering/Resolving]
  - Poisoning deliberate [Recovered/Resolved with Sequelae]
  - Coma [Recovered/Resolved]
  - Intentional overdose [Unknown]

NARRATIVE: CASE EVENT DATE: 20230515
